FAERS Safety Report 24019304 (Version 2)
Quarter: 2024Q3

REPORT INFORMATION
  Report Type: Spontaneous
  Country: JP (occurrence: JP)
  Receive Date: 20240627
  Receipt Date: 20240716
  Transmission Date: 20241017
  Serious: Yes (Death, Hospitalization)
  Sender: PFIZER
  Company Number: JP-PFIZER INC-PV202400043255

PATIENT
  Age: 49 Year
  Sex: Male
  Weight: 52 kg

DRUGS (11)
  1. LORLATINIB [Suspect]
     Active Substance: LORLATINIB
     Indication: Non-small cell lung cancer
     Dosage: 100 MG, DAILY
     Route: 048
     Dates: start: 20181218, end: 20200225
  2. NEXIUM I.V. [Concomitant]
     Active Substance: ESOMEPRAZOLE SODIUM
     Dosage: 20 MG, 1X/DAY
  3. LOXOPROFEN [Concomitant]
     Active Substance: LOXOPROFEN
     Dosage: 60 MG, 2X/DAY
  4. SERTRALINE [Concomitant]
     Active Substance: SERTRALINE HYDROCHLORIDE
     Dosage: 50 MG, 2X/DAY
  5. LORAZEPAM [Concomitant]
     Active Substance: LORAZEPAM
     Dosage: 1 MG, 3X/DAY
  6. FLUNITRAZEPAM [Concomitant]
     Active Substance: FLUNITRAZEPAM
     Dosage: 2 MG, 1X/DAY
  7. TRAZODONE [Concomitant]
     Active Substance: TRAZODONE HYDROCHLORIDE
     Dosage: 125 MG, 1X/DAY
  8. RISPERIDONE [Concomitant]
     Active Substance: RISPERIDONE
     Dosage: 1 MG, 1X/DAY
  9. PL [Concomitant]
     Active Substance: ACETAMINOPHEN\CAFFEINE\PROMETHAZINE\SALICYLAMIDE
     Dosage: 1 G, 3X/DAY
  10. REBAMIPIDE [Concomitant]
     Active Substance: REBAMIPIDE
     Dosage: 100 MG, 3X/DAY
  11. MOSAPRIDE [Concomitant]
     Active Substance: MOSAPRIDE
     Dosage: 5 MG, 3X/DAY

REACTIONS (1)
  - Performance status decreased [Fatal]

NARRATIVE: CASE EVENT DATE: 20200201
